FAERS Safety Report 7381821-2 (Version None)
Quarter: 2011Q1

REPORT INFORMATION
  Report Type: 
  Country: None (occurrence: None)
  Receive Date: 20110329
  Receipt Date: 20110317
  Transmission Date: 20110831
  Serious: Yes (Disabling, Other)
  Sender: FDA-Public Use
  Company Number: PHHY2011GB21590

PATIENT
  Age: 81 Year
  Sex: Male
  Weight: 70 kg

DRUGS (6)
  1. AMIODARONE HCL [Concomitant]
  2. TRAZODONE HYDROCHLORIDE [Suspect]
     Indication: AGITATION
     Dosage: 50 MG, UNK
     Route: 048
     Dates: start: 20110307, end: 20110308
  3. DONEPEZIL HYDROCHLORIDE [Suspect]
     Indication: DEMENTIA ALZHEIMER'S TYPE
     Dosage: 10 MG, UNK
     Route: 048
     Dates: end: 20110310
  4. RAMIPRIL [Concomitant]
  5. WARFARIN SODIUM [Concomitant]
  6. BISOPROLOL FUMARATE [Concomitant]

REACTIONS (3)
  - FATIGUE [None]
  - SEROTONIN SYNDROME [None]
  - MYOCLONUS [None]
